FAERS Safety Report 24912588 (Version 2)
Quarter: 2025Q1

REPORT INFORMATION
  Report Type: Spontaneous
  Country: DE (occurrence: DE)
  Receive Date: 20250131
  Receipt Date: 20250331
  Transmission Date: 20250409
  Serious: Yes (Death, Hospitalization)
  Sender: PFIZER
  Company Number: DE-DCGMA-25204562

PATIENT
  Age: 66 Year
  Sex: Female
  Weight: 70 kg

DRUGS (2)
  1. CRIZOTINIB [Suspect]
     Active Substance: CRIZOTINIB
     Indication: Chemotherapy
     Dates: start: 20241210
  2. PEMBROLIZUMAB [Concomitant]
     Active Substance: PEMBROLIZUMAB
     Indication: Chemotherapy
     Dates: start: 20241010

REACTIONS (10)
  - Acute hepatic failure [Fatal]
  - Ascites [Fatal]
  - Pericardial effusion [Fatal]
  - Pleural effusion [Fatal]
  - Hepatic encephalopathy [Fatal]
  - Agitation [Fatal]
  - Restlessness [Fatal]
  - Fall [Fatal]
  - Anisocoria [Fatal]
  - Multiple organ dysfunction syndrome [Fatal]

NARRATIVE: CASE EVENT DATE: 20241201
